FAERS Safety Report 5851469-7 (Version None)
Quarter: 2008Q3

REPORT INFORMATION
  Report Type: 
  Country: None (occurrence: None)
  Receive Date: 20080820
  Receipt Date: 20080812
  Transmission Date: 20090109
  Serious: Yes (Hospitalization)
  Sender: FDA-Public Use
  Company Number: US-ABBOTT-08P-163-0470348-00

PATIENT
  Sex: Male
  Weight: 95.34 kg

DRUGS (2)
  1. MERIDIA [Suspect]
     Indication: WEIGHT CONTROL
     Route: 048
     Dates: start: 20080710, end: 20080807
  2. CYCLOBENZAPRINE HCL [Concomitant]
     Indication: BACK PAIN

REACTIONS (4)
  - BACK PAIN [None]
  - BLOOD IRON DECREASED [None]
  - PAIN IN EXTREMITY [None]
  - THROMBOSIS [None]
